FAERS Safety Report 9275425 (Version 1)
Quarter: 2013Q2

REPORT INFORMATION
  Report Type: Spontaneous
  Country: US (occurrence: US)
  Receive Date: 20130507
  Receipt Date: 20130507
  Transmission Date: 20140414
  Serious: No
  Sender: FDA-Public Use
  Company Number: US-PFIZER INC-2013138544

PATIENT
  Age: 34 Year
  Sex: Female
  Weight: 74.83 kg

DRUGS (2)
  1. ADVIL CONGESTION RELIEF [Suspect]
     Indication: SINUSITIS
     Dosage: ONE TABLET 200 MG, SINGLE
     Route: 048
     Dates: start: 20130501, end: 20130501
  2. ADVIL CONGESTION RELIEF [Suspect]
     Indication: SINUS HEADACHE

REACTIONS (3)
  - Pain in extremity [Not Recovered/Not Resolved]
  - Anxiety [Recovered/Resolved]
  - Tremor [Recovered/Resolved]
